FAERS Safety Report 6222239-5 (Version None)
Quarter: 2009Q2

REPORT INFORMATION
  Report Type: 
  Country: None (occurrence: None)
  Receive Date: 20090611
  Receipt Date: 20090602
  Transmission Date: 20091009
  Serious: Yes (Other)
  Sender: FDA-Public Use
  Company Number: PHHY2009MX21832

PATIENT
  Age: 63 Year
  Sex: Female

DRUGS (4)
  1. ACLASTA [Suspect]
     Indication: OSTEOPOROSIS
     Dosage: 5MG/100ML PER YEAR
     Dates: start: 20080401
  2. PARACETAMOL [Concomitant]
     Dosage: UNK
     Dates: start: 20050101
  3. METOPROLOL SUCCINATE [Concomitant]
     Dosage: UNK
     Dates: start: 20080101
  4. DIOVAN HCT [Concomitant]
     Indication: HYPERTENSION
     Dosage: 1 DF, QD
     Route: 048
     Dates: start: 20090424

REACTIONS (11)
  - ARTHRALGIA [None]
  - BACK PAIN [None]
  - CARDIAC DISORDER [None]
  - CHILLS [None]
  - HEADACHE [None]
  - HYPOAESTHESIA [None]
  - NAUSEA [None]
  - NECK PAIN [None]
  - PAIN IN EXTREMITY [None]
  - PYREXIA [None]
  - THROMBOPHLEBITIS [None]
